FAERS Safety Report 17471313 (Version 2)
Quarter: 2020Q1

REPORT INFORMATION
  Report Type: Spontaneous
  Country: FR (occurrence: FR)
  Receive Date: 20200227
  Receipt Date: 20200319
  Transmission Date: 20200409
  Serious: Yes (Hospitalization, Other)
  Sender: FDA-Public Use
  Company Number: FR-ALEXION PHARMACEUTICALS INC.-A202002464

PATIENT
  Age: 77 Year
  Sex: Male
  Weight: 64 kg

DRUGS (2)
  1. SOLIRIS [Suspect]
     Active Substance: ECULIZUMAB
     Dosage: 1200 MG, Q2W
     Route: 065
     Dates: end: 20200205
  2. SOLIRIS [Suspect]
     Active Substance: ECULIZUMAB
     Indication: ATYPICAL HAEMOLYTIC URAEMIC SYNDROME
     Dosage: EVERY WEEK DURING 5 WEEKS
     Route: 065
     Dates: start: 20191220

REACTIONS (9)
  - Bacteraemia [Recovered/Resolved with Sequelae]
  - Streptococcal sepsis [Recovered/Resolved with Sequelae]
  - Pyrexia [Unknown]
  - Gouty arthritis [Unknown]
  - Bronchitis [Unknown]
  - Neutropenia [Unknown]
  - Cough [Unknown]
  - Enterococcal sepsis [Recovered/Resolved with Sequelae]
  - Staphylococcal sepsis [Recovered/Resolved with Sequelae]

NARRATIVE: CASE EVENT DATE: 202002
